FAERS Safety Report 5087628-3 (Version None)
Quarter: 2006Q3

REPORT INFORMATION
  Report Type: 
  Country: None (occurrence: None)
  Receive Date: 20060727
  Receipt Date: 20060403
  Transmission Date: 20061208
  Serious: Yes (Other)
  Sender: FDA-Public Use
  Company Number: 2006049258

PATIENT
  Age: 68 Year
  Sex: Female
  Weight: 82.1011 kg

DRUGS (3)
  1. LYRICA [Suspect]
     Indication: BURNING SENSATION
     Dosage: 150 MG (50 MG, 3 IN 1D)
     Dates: start: 20060402
  2. ALLOPURINOL [Concomitant]
  3. CRESTOR [Concomitant]

REACTIONS (1)
  - DIZZINESS [None]
